FAERS Safety Report 19060436 (Version 1)
Quarter: 2021Q1

REPORT INFORMATION
  Report Type: Spontaneous
  Country: US (occurrence: US)
  Receive Date: 20210326
  Receipt Date: 20210326
  Transmission Date: 20210420
  Serious: Yes (Other)
  Sender: FDA-Public Use
  Company Number: US-AUROBINDO-AUR-APL-2021-011298

PATIENT
  Age: 61 Year
  Sex: Female

DRUGS (2)
  1. PROPYLENE GLYCOL [Suspect]
     Active Substance: PROPYLENE GLYCOL
     Indication: PRODUCT USED FOR UNKNOWN INDICATION
     Dosage: UNK (15?40 MG/KG)
     Route: 065
  2. ACETAMINOPHEN. [Suspect]
     Active Substance: ACETAMINOPHEN
     Indication: PRODUCT USED FOR UNKNOWN INDICATION
     Dosage: UNK
     Route: 042

REACTIONS (5)
  - Dizziness [Recovered/Resolved]
  - Incorrect route of product administration [Unknown]
  - Shock [Recovered/Resolved]
  - Lactic acidosis [Recovered/Resolved]
  - Myocardial depression [Recovered/Resolved]
